FAERS Safety Report 23141551 (Version 1)
Quarter: 2023Q4

REPORT INFORMATION
  Report Type: Spontaneous
  Country: US (occurrence: None)
  Receive Date: 20231103
  Receipt Date: 20231103
  Transmission Date: 20240110
  Serious: Yes (Hospitalization, Other)
  Sender: FDA-Public Use
  Company Number: US-MDD US Operations-MDD202310-004152

PATIENT
  Age: 71 Year
  Sex: Female

DRUGS (1)
  1. APOKYN [Suspect]
     Active Substance: APOMORPHINE HYDROCHLORIDE
     Indication: Parkinson^s disease
     Dosage: STARTED TAKING APOKYN BEFORE 2018

REACTIONS (6)
  - Eating disorder [Recovered/Resolved]
  - Dehydration [Recovered/Resolved]
  - Urinary tract infection [Unknown]
  - Fall [Recovered/Resolved]
  - Joint injury [Unknown]
  - Contusion [Unknown]

NARRATIVE: CASE EVENT DATE: 20230101
